FAERS Safety Report 10204729 (Version 1)
Quarter: 2014Q2

REPORT INFORMATION
  Report Type: Spontaneous
  Country: FR (occurrence: FR)
  Receive Date: 20140529
  Receipt Date: 20140529
  Transmission Date: 20141212
  Serious: Yes (Hospitalization)
  Sender: FDA-Public Use
  Company Number: FR-GLAXOSMITHKLINE-B0997114A

PATIENT
  Age: 84 Year
  Sex: Female

DRUGS (2)
  1. ARIXTRA [Suspect]
     Indication: PRODUCT USED FOR UNKNOWN INDICATION
     Route: 058
     Dates: start: 20131017, end: 20131025
  2. PREVISCAN (FLUINDIONE) [Concomitant]
     Indication: ATRIAL FIBRILLATION
     Route: 065
     Dates: end: 2013

REACTIONS (5)
  - Haematoma [Recovering/Resolving]
  - Bradycardia [Unknown]
  - Skin necrosis [Unknown]
  - Ecchymosis [Unknown]
  - Medication error [Unknown]
